FAERS Safety Report 21335822 (Version 1)
Quarter: 2022Q3

REPORT INFORMATION
  Report Type: Report from Study
  Country: GB (occurrence: GB)
  Receive Date: 20220915
  Receipt Date: 20220915
  Transmission Date: 20221026
  Serious: Yes (Hospitalization, Other)
  Sender: FDA-Public Use
  Company Number: GB-NOVOPROD-927307

PATIENT
  Age: 80 Year
  Sex: Male
  Weight: 97 kg

DRUGS (7)
  1. SEMAGLUTIDE [Suspect]
     Active Substance: SEMAGLUTIDE
     Indication: Cardiac failure
     Dosage: 2.4,MG,ONCE PER WEEK
     Route: 058
     Dates: start: 20210921, end: 20220531
  2. APIXABAN [Concomitant]
     Active Substance: APIXABAN
     Dates: start: 20200102
  3. BISOPROLOL [Concomitant]
     Active Substance: BISOPROLOL
     Dates: start: 20200102, end: 20220726
  4. EZETIMIBE [Concomitant]
     Active Substance: EZETIMIBE
     Dates: start: 20191010
  5. FUROSEMIDE [Concomitant]
     Active Substance: FUROSEMIDE
     Dates: start: 20200102
  6. RAMIPRIL [Concomitant]
     Active Substance: RAMIPRIL
     Dates: start: 20191010, end: 20211123
  7. FLUCLOXACILLIN [Concomitant]
     Active Substance: FLUCLOXACILLIN
     Indication: Cellulitis
     Dates: start: 20220110, end: 20220120

REACTIONS (2)
  - Bile duct stone [Recovered/Resolved]
  - Cholecystitis [Recovered/Resolved]

NARRATIVE: CASE EVENT DATE: 20220606
